FAERS Safety Report 22179407 (Version 1)
Quarter: 2023Q2

REPORT INFORMATION
  Report Type: Spontaneous
  Country: GB (occurrence: GB)
  Receive Date: 20230406
  Receipt Date: 20230406
  Transmission Date: 20230721
  Serious: Yes (Other)
  Sender: FDA-Public Use
  Company Number: None

PATIENT
  Age: 46 Year
  Sex: Male
  Weight: 73 kg

DRUGS (14)
  1. IBUPROFEN [Suspect]
     Active Substance: IBUPROFEN
     Indication: Product used for unknown indication
     Dosage: UNK (100MG/5ML) ORAL SUSPENSION
     Route: 048
     Dates: start: 20221222
  2. ASPIRIN [Concomitant]
     Active Substance: ASPIRIN
     Indication: Product used for unknown indication
     Dosage: TAKE ONE DAILY, OD
     Route: 065
     Dates: start: 20221207
  3. ATORVASTATIN [Concomitant]
     Active Substance: ATORVASTATIN
     Indication: Product used for unknown indication
     Dosage: TAKE ONE DAILY, OD
     Route: 065
     Dates: start: 20221207
  4. BISOPROLOL [Concomitant]
     Active Substance: BISOPROLOL
     Indication: Product used for unknown indication
     Dosage: TAKE ONE DAILY, OD
     Route: 065
     Dates: start: 20221207
  5. CLOPIDOGREL [Concomitant]
     Active Substance: CLOPIDOGREL BISULFATE
     Indication: Product used for unknown indication
     Dosage: TAKE ONE ONCE DAILY, OD
     Route: 065
     Dates: start: 20221207
  6. DAPAGLIFLOZIN [Concomitant]
     Active Substance: DAPAGLIFLOZIN
     Indication: Product used for unknown indication
     Dosage: TAKE ONE DAILY, OD
     Route: 065
     Dates: start: 20221207
  7. ENTRESTO [Concomitant]
     Active Substance: SACUBITRIL\VALSARTAN
     Indication: Product used for unknown indication
     Dosage: UNK, 1BD
     Route: 065
     Dates: start: 20221216
  8. EPLERENONE [Concomitant]
     Active Substance: EPLERENONE
     Indication: Product used for unknown indication
     Dosage: TAKE ONE DAILY, OD
     Route: 065
     Dates: start: 20221207
  9. NITROGLYCERIN [Concomitant]
     Active Substance: NITROGLYCERIN
     Indication: Product used for unknown indication
     Dosage: UNK, (ONE TO TWO DOSES UNDER THE TONGUE)
     Route: 065
     Dates: start: 20221216
  10. IVABRADINE [Concomitant]
     Active Substance: IVABRADINE
     Indication: Product used for unknown indication
     Dosage: TAKE ONE TWICE DAILY, BID
     Route: 065
     Dates: start: 20221207
  11. LANSOPRAZOLE [Concomitant]
     Active Substance: LANSOPRAZOLE
     Indication: Product used for unknown indication
     Dosage: TAKE ONE ONCE DAILY, OD
     Route: 065
     Dates: start: 20221207
  12. POLYETHYLENE GLYCOL 3350\POTASSIUM CHLORIDE\SODIUM BICARBONATE\SODIUM [Concomitant]
     Active Substance: POLYETHYLENE GLYCOL 3350\POTASSIUM CHLORIDE\SODIUM BICARBONATE\SODIUM CHLORIDE
     Indication: Product used for unknown indication
     Dosage: TAKE ONE SACHET TWICE A DAY WHEN NEEDED, BID
     Route: 065
     Dates: start: 20221207, end: 20221214
  13. SACUBITRIL [Concomitant]
     Active Substance: SACUBITRIL
     Indication: Product used for unknown indication
     Dosage: TAKE ONE TWICE A DAY, BID
     Route: 065
     Dates: start: 20221207, end: 20221214
  14. WARFARIN SODIUM [Concomitant]
     Active Substance: WARFARIN SODIUM
     Indication: Product used for unknown indication
     Dosage: TAKE ACCORDING TO INR RESULT AS DIRECTED
     Route: 065
     Dates: start: 20221216

REACTIONS (1)
  - Abdominal discomfort [Unknown]
